FAERS Safety Report 7108846-6 (Version None)
Quarter: 2010Q4

REPORT INFORMATION
  Report Type: 
  Country: None (occurrence: None)
  Receive Date: 20101117
  Receipt Date: 20101108
  Transmission Date: 20110411
  Serious: Yes (Hospitalization, Other)
  Sender: FDA-Public Use
  Company Number: US-BAYER-201039582GPV

PATIENT
  Age: 67 Year
  Sex: Male

DRUGS (7)
  1. NAPROSYN [Suspect]
     Indication: SPONDYLITIS
     Dosage: 2-3 YEARS
     Route: 048
     Dates: end: 20100508
  2. ASPIRIN [Suspect]
     Indication: CARDIOVASCULAR EVENT PROPHYLAXIS
     Route: 048
  3. METFORMIN [Concomitant]
     Indication: BLOOD GLUCOSE ABNORMAL
  4. NORVASC [Concomitant]
     Indication: HYPERTENSION
     Dates: start: 20040903
  5. XANAX [Concomitant]
     Indication: ANXIETY
     Dates: start: 20000101
  6. VICODIN [Concomitant]
     Indication: PAIN
     Dates: start: 20000101
  7. BUMEX [Concomitant]

REACTIONS (2)
  - DUODENAL ULCER HAEMORRHAGE [None]
  - HAEMORRHAGIC ANAEMIA [None]
